FAERS Safety Report 5544257-2 (Version None)
Quarter: 2007Q4

REPORT INFORMATION
  Report Type: 
  Country: None (occurrence: None)
  Receive Date: 20071206
  Receipt Date: 20071128
  Transmission Date: 20080405
  Serious: Yes (Hospitalization)
  Sender: FDA-Public Use
  Company Number: 163-21880-07111646

PATIENT
  Age: 56 Year
  Sex: Female

DRUGS (3)
  1. REVLIMID [Suspect]
     Indication: MULTIPLE MYELOMA
     Dosage: 25 MG, DAILY, DAYS 1-21, ORAL; 10 MG, DAYS 1-14, ORAL; 10 MG, DAYS 1-14, ORAL
     Route: 048
     Dates: start: 20070926, end: 20071006
  2. REVLIMID [Suspect]
     Indication: MULTIPLE MYELOMA
     Dosage: 25 MG, DAILY, DAYS 1-21, ORAL; 10 MG, DAYS 1-14, ORAL; 10 MG, DAYS 1-14, ORAL
     Route: 048
     Dates: start: 20071024, end: 20071122
  3. REVLIMID [Suspect]
     Indication: MULTIPLE MYELOMA
     Dosage: 25 MG, DAILY, DAYS 1-21, ORAL; 10 MG, DAYS 1-14, ORAL; 10 MG, DAYS 1-14, ORAL
     Route: 048
     Dates: start: 20071128

REACTIONS (7)
  - ANAEMIA [None]
  - DISEASE PROGRESSION [None]
  - FLUID OVERLOAD [None]
  - HYPOTENSION [None]
  - OEDEMA PERIPHERAL [None]
  - PANCYTOPENIA [None]
  - SEPSIS [None]
